FAERS Safety Report 4801655-X (Version None)
Quarter: 2005Q4

REPORT INFORMATION
  Report Type: 
  Country: None (occurrence: None)
  Receive Date: 20051011
  Receipt Date: 20050926
  Transmission Date: 20060501
  Serious: Yes (Hospitalization)
  Sender: FDA-Public Use
  Company Number: 218068

PATIENT
  Age: 63 Year
  Sex: Female

DRUGS (1)
  1. RAPTIVA [Suspect]
     Indication: PSORIASIS
     Dosage: 0.6 ML, SINGLE
     Dates: start: 20050919

REACTIONS (3)
  - ARTHRALGIA [None]
  - DYSPNOEA [None]
  - PYREXIA [None]
